FAERS Safety Report 14648065 (Version 1)
Quarter: 2018Q1

REPORT INFORMATION
  Report Type: Spontaneous
  Country: ES (occurrence: ES)
  Receive Date: 20180316
  Receipt Date: 20180316
  Transmission Date: 20180509
  Serious: Yes (Hospitalization)
  Sender: FDA-Public Use
  Company Number: ES-TEVA-2018-ES-868188

PATIENT
  Age: 87 Year
  Sex: Female
  Weight: 49.5 kg

DRUGS (8)
  1. BLOKIUM-DIU 100 MG/25 MG COMPRIMIDOS, 28 COMPRIMIDOS [Concomitant]
     Indication: HYPERTENSION
     Route: 048
  2. LORAZEPAM (1864A) [Concomitant]
     Indication: ANXIETY
     Route: 048
  3. SINTROM [Interacting]
     Active Substance: ACENOCOUMAROL
     Indication: PANCREATITIS
     Dosage: SPL
     Route: 048
  4. PARACETAMOL (12A) [Concomitant]
     Active Substance: ACETAMINOPHEN
     Indication: PAIN
     Route: 048
  5. NAPROXENO (2002A) [Suspect]
     Active Substance: NAPROXEN
     Indication: BACK PAIN
     Route: 048
  6. SERTRALINA (2537A) [Concomitant]
     Active Substance: SERTRALINE HYDROCHLORIDE
     Indication: ANXIETY
     Route: 048
  7. YANTIL RETARD 50 MG COMPRIMIDOS DE LIBERACION PROLONGADA [Concomitant]
     Indication: PAIN
     Route: 048
  8. BOI-K COMPRIMIDOS EFERVESCENTES , 20 COMPRIMIDOS [Concomitant]
     Indication: HYPOKALAEMIA
     Route: 048

REACTIONS (2)
  - Drug interaction [Unknown]
  - Upper gastrointestinal haemorrhage [Recovered/Resolved]
